FAERS Safety Report 25740026 (Version 1)
Quarter: 2025Q3

REPORT INFORMATION
  Report Type: Spontaneous
  Country: EU (occurrence: EU)
  Receive Date: 20250829
  Receipt Date: 20250829
  Transmission Date: 20251020
  Serious: Yes (Hospitalization)
  Sender: ROCHE
  Company Number: EU-ROCHE-10000368786

PATIENT
  Sex: Male

DRUGS (1)
  1. MABTHERA [Suspect]
     Active Substance: RITUXIMAB
     Indication: Chronic inflammatory demyelinating polyradiculoneuropathy
     Route: 065

REACTIONS (9)
  - Muscular weakness [Unknown]
  - Skin disorder [Unknown]
  - Oedema peripheral [Unknown]
  - Dermatitis [Unknown]
  - Nausea [Unknown]
  - Dizziness [Unknown]
  - Speech disorder [Unknown]
  - Mobility decreased [Unknown]
  - Off label use [Unknown]
